FAERS Safety Report 9276205 (Version 1)
Quarter: 2013Q2

REPORT INFORMATION
  Report Type: Spontaneous
  Country: US (occurrence: US)
  Receive Date: 20130507
  Receipt Date: 20130507
  Transmission Date: 20140414
  Serious: Yes (Hospitalization)
  Sender: FDA-Public Use
  Company Number: US-PURDUE-USA-2013-0100293

PATIENT
  Sex: Female

DRUGS (1)
  1. BUTRANS [Suspect]
     Indication: PAIN
     Dosage: 5 MCG/HR, WEEKLY
     Route: 062
     Dates: start: 201210

REACTIONS (5)
  - Anaemia [Unknown]
  - Pneumonia [Unknown]
  - Dysphonia [Not Recovered/Not Resolved]
  - Oral mucosal blistering [Recovering/Resolving]
  - Gait disturbance [Unknown]
